FAERS Safety Report 9248254 (Version 1)
Quarter: 2013Q1

REPORT INFORMATION
  Report Type: Spontaneous
  Country: US (occurrence: None)
  Receive Date: 20130305
  Receipt Date: 20130305
  Transmission Date: 20140127
  Serious: Yes (Hospitalization, Other)
  Sender: FDA-Public Use
  Company Number: 163-21880-12060684

PATIENT
  Age: 73 Year
  Sex: Male

DRUGS (1)
  1. REVLIMID (LENALIDOMIDE) (CAPSULES) [Suspect]
     Indication: PLASMA CELL MYELOMA
     Dosage: 10 MG, 21 IN 28 D, PO
     Dates: start: 20110907, end: 2011

REACTIONS (7)
  - Thrombosis [None]
  - Chest discomfort [None]
  - Dyspnoea [None]
  - Local swelling [None]
  - Diarrhoea [None]
  - Pruritus [None]
  - Fatigue [None]
